FAERS Safety Report 12358303 (Version 1)
Quarter: 2016Q2

REPORT INFORMATION
  Report Type: Spontaneous
  Country: US (occurrence: None)
  Receive Date: 20160511
  Receipt Date: 20160511
  Transmission Date: 20160815
  Serious: Yes (Disabling)
  Sender: FDA-Public Use
  Company Number: None

PATIENT
  Age: 62 Year
  Sex: Female
  Weight: 65.77 kg

DRUGS (16)
  1. ZANTAC [Concomitant]
     Active Substance: RANITIDINE HYDROCHLORIDE
  2. ALBUTEROL SOLUTION NEBULISER SOLUTION [Concomitant]
     Active Substance: ALBUTEROL
  3. IBUPROPHEN [Concomitant]
     Active Substance: IBUPROFEN
  4. VITAMIN D [Concomitant]
     Active Substance: CHOLECALCIFEROL
  5. SINGULAIR [Concomitant]
     Active Substance: MONTELUKAST SODIUM
  6. CHLORTHALDONE [Concomitant]
  7. NEBULIZER [Concomitant]
     Active Substance: DEVICE
  8. FLOXIN (GENERIC) [Suspect]
     Active Substance: OFLOXACIN
     Indication: CAMPYLOBACTER COLITIS
     Dates: start: 201301, end: 201301
  9. FLONASE [Concomitant]
     Active Substance: FLUTICASONE PROPIONATE
  10. HARVONI [Suspect]
     Active Substance: LEDIPASVIR\SOFOSBUVIR
     Indication: HEPATITIS C
     Dosage: 1 PILL/DAY DAILY PO (BY MOUTH)
     Route: 048
     Dates: start: 20151001, end: 20151022
  11. VITAMIN K [Concomitant]
     Active Substance: PHYTONADIONE
  12. DHEA [Concomitant]
     Active Substance: PRASTERONE
  13. PULMOCORT [Concomitant]
  14. VITAMIN E [Concomitant]
     Active Substance: .ALPHA.-TOCOPHEROL
  15. PROAIR HFA [Concomitant]
     Active Substance: ALBUTEROL SULFATE
  16. SYNTHROID [Concomitant]
     Active Substance: LEVOTHYROXINE SODIUM

REACTIONS (5)
  - Burning sensation [None]
  - Pruritus [None]
  - Lip swelling [None]
  - Oral pruritus [None]
  - Rash [None]
